FAERS Safety Report 4334522-9 (Version None)
Quarter: 2004Q2

REPORT INFORMATION
  Report Type: 
  Country: None (occurrence: None)
  Receive Date: 20040407
  Receipt Date: 20040325
  Transmission Date: 20050107
  Serious: Yes (Hospitalization)
  Sender: FDA-Public Use
  Company Number: FR-GLAXOSMITHKLINE-B0328008A

PATIENT
  Age: 84 Year
  Sex: Female

DRUGS (4)
  1. AUGMENTIN [Suspect]
     Indication: LUNG INFECTION
     Dosage: 3UNIT PER DAY
     Route: 048
     Dates: start: 20031215, end: 20031230
  2. ARICEPT [Concomitant]
  3. TIAPRIDAL [Concomitant]
  4. HALDOL [Concomitant]

REACTIONS (2)
  - HEPATITIS [None]
  - JAUNDICE [None]
